FAERS Safety Report 25890764 (Version 1)
Quarter: 2025Q4

REPORT INFORMATION
  Report Type: Spontaneous
  Country: US (occurrence: US)
  Receive Date: 20251007
  Receipt Date: 20251007
  Transmission Date: 20260118
  Serious: Yes (Hospitalization)
  Sender: SANOFI AVENTIS
  Company Number: US-SA-2025SA293713

PATIENT
  Age: 57 Year
  Sex: Male

DRUGS (1)
  1. FABRAZYME [Suspect]
     Active Substance: AGALSIDASE BETA
     Dosage: 80 MG, BIM (70 MG USING 35 MG STRENGTH VIALS AND 10 MG USING 5 MG STRENGTH VIALS)

REACTIONS (4)
  - Troponin increased [Unknown]
  - Chest pain [Unknown]
  - Dyspnoea [Unknown]
  - Pain in extremity [Unknown]

NARRATIVE: CASE EVENT DATE: 20250101
